FAERS Safety Report 11149616 (Version 1)
Quarter: 2015Q2

REPORT INFORMATION
  Report Type: Spontaneous
  Country: US (occurrence: None)
  Receive Date: 20150528
  Receipt Date: 20150528
  Transmission Date: 20150821
  Serious: Yes (Other)
  Sender: FDA-Public Use
  Company Number: None

PATIENT
  Age: 40 Year
  Sex: Female
  Weight: 79.38 kg

DRUGS (8)
  1. CENTRUM [Concomitant]
     Active Substance: VITAMINS
  2. TOPRIMATE 100MG GLENMARK [Suspect]
     Active Substance: TOPIRAMATE
     Indication: SEIZURE
     Dosage: 5 TABLETS DAILY
     Route: 048
     Dates: start: 20150518, end: 20150527
  3. DEPAKOTE IR [Concomitant]
  4. SYNTHROID [Concomitant]
     Active Substance: LEVOTHYROXINE SODIUM
  5. TOPRIMATE [Concomitant]
     Active Substance: TOPIRAMATE
  6. VITAMIN C [Concomitant]
     Active Substance: ASCORBIC ACID
  7. ACTOS [Concomitant]
     Active Substance: PIOGLITAZONE HYDROCHLORIDE
  8. TRINESSA BC [Concomitant]

REACTIONS (2)
  - Seizure [None]
  - Product substitution issue [None]

NARRATIVE: CASE EVENT DATE: 20150527
